FAERS Safety Report 9612011 (Version 2)
Quarter: 2013Q4

REPORT INFORMATION
  Report Type: Spontaneous
  Country: US (occurrence: US)
  Receive Date: 20131010
  Receipt Date: 20131127
  Transmission Date: 20140711
  Serious: No
  Sender: FDA-Public Use
  Company Number: US-BAYER-2013-121646

PATIENT
  Age: 67 Year
  Sex: Male

DRUGS (8)
  1. STAXYN (FDT/ODT) [Suspect]
     Indication: ERECTILE DYSFUNCTION
     Dosage: 10 MG, PRN
     Route: 048
     Dates: start: 20131006
  2. VESICARE [Concomitant]
     Dosage: 5 MG, QD
  3. METOPROLOL TARTRATE [Concomitant]
     Dosage: 5 MG, BID
  4. ALFUZOSIN [Concomitant]
     Dosage: 10 MG, QD
  5. ATORVASTATIN [Concomitant]
     Dosage: 10 MG, QD
  6. ZALEPLON [Concomitant]
     Dosage: 10 MG, QD
  7. LORAZEPAM [Concomitant]
     Dosage: 0.5 MG, PRN
  8. TRAMADOL [Concomitant]
     Dosage: 500 MG, PRN

REACTIONS (4)
  - Pruritus generalised [Recovered/Resolved]
  - Formication [Recovered/Resolved]
  - Nausea [None]
  - Drug hypersensitivity [None]
